FAERS Safety Report 6672465-6 (Version None)
Quarter: 2010Q2

REPORT INFORMATION
  Report Type: 
  Country: None (occurrence: None)
  Receive Date: 20100408
  Receipt Date: 20100331
  Transmission Date: 20101027
  Serious: Yes (Life-Threatening, Hospitalization, Disabling, Other)
  Sender: FDA-Public Use
  Company Number: JP-NOVOPROD-301691

PATIENT
  Sex: Male
  Weight: 37 kg

DRUGS (3)
  1. NOVOLIN N [Suspect]
     Indication: TYPE 2 DIABETES MELLITUS
     Dosage: UNKNOWN
     Route: 058
     Dates: end: 20050101
  2. HUMALOG [Concomitant]
     Indication: TYPE 2 DIABETES MELLITUS
     Dosage: UNKNOWN
     Route: 058
     Dates: end: 20050101
  3. HUMULIN R [Concomitant]
     Indication: TYPE 2 DIABETES MELLITUS
     Dosage: UNK
     Dates: start: 20050126

REACTIONS (6)
  - CONVULSION [None]
  - HYPOCHLORAEMIA [None]
  - HYPOGLYCAEMIC COMA [None]
  - HYPOGLYCAEMIC ENCEPHALOPATHY [None]
  - HYPONATRAEMIA [None]
  - INAPPROPRIATE ANTIDIURETIC HORMONE SECRETION [None]
